FAERS Safety Report 5632039-2 (Version None)
Quarter: 2008Q1

REPORT INFORMATION
  Report Type: 
  Country: None (occurrence: None)
  Receive Date: 20080220
  Receipt Date: 20080220
  Transmission Date: 20080703
  Serious: Yes (Hospitalization)
  Sender: FDA-Public Use
  Company Number: A0710687A

PATIENT
  Age: 59 Year
  Sex: Female

DRUGS (1)
  1. ALLI [Suspect]
     Indication: DRUG USE FOR UNKNOWN INDICATION
     Route: 048

REACTIONS (5)
  - APPENDICECTOMY [None]
  - DIARRHOEA [None]
  - FAECAL INCONTINENCE [None]
  - GASTROINTESTINAL INFECTION [None]
  - STEATORRHOEA [None]
